FAERS Safety Report 9397681 (Version 1)
Quarter: 2013Q3

REPORT INFORMATION
  Report Type: Spontaneous
  Country: US (occurrence: None)
  Receive Date: 20130711
  Receipt Date: 20130711
  Transmission Date: 20140515
  Serious: Yes (Disabling)
  Sender: FDA-Public Use
  Company Number: None

PATIENT
  Age: 70 Year
  Sex: Female
  Weight: 65.77 kg

DRUGS (1)
  1. OPTIRAY [Suspect]
     Indication: INTRAOCULAR PRESSURE INCREASED
     Dosage: 300 -50CC-, ONCE, IV BOLUS
     Route: 040
     Dates: start: 20130508, end: 20130508

REACTIONS (5)
  - Vitreous disorder [None]
  - Malaise [None]
  - Hypertension [None]
  - Thyroid disorder [None]
  - Visual impairment [None]
